FAERS Safety Report 18925299 (Version 1)
Quarter: 2021Q1

REPORT INFORMATION
  Report Type: Spontaneous
  Country: DE (occurrence: DE)
  Receive Date: 20210223
  Receipt Date: 20210223
  Transmission Date: 20210420
  Serious: Yes (Hospitalization)
  Sender: FDA-Public Use
  Company Number: DE-TEVA-2021-DE-1882498

PATIENT
  Age: 83 Year
  Sex: Male

DRUGS (6)
  1. CHLOROQUINE. [Suspect]
     Active Substance: CHLOROQUINE
     Indication: POLYMYALGIA RHEUMATICA
     Route: 065
  2. PHENOBARBITAL. [Concomitant]
     Active Substance: PHENOBARBITAL
     Indication: POLYMYALGIA RHEUMATICA
     Route: 065
  3. BCG [Suspect]
     Active Substance: BCG VACCINE
     Indication: BLADDER TRANSITIONAL CELL CARCINOMA
     Dosage: INTRAVESICAL BCG?INSTILLATIONS FROM 2012 TO 2017
     Route: 043
  4. PREDNISOLONE. [Concomitant]
     Active Substance: PREDNISOLONE
     Indication: POLYMYALGIA RHEUMATICA
     Dosage: INCREASED TO 30MG DAILY; LATER, AGAIN RECEIVED 20MG DAILY
     Route: 065
  5. VALPROATE [Suspect]
     Active Substance: VALPROIC ACID
     Indication: POLYMYALGIA RHEUMATICA
     Route: 065
  6. PREDNISOLONE. [Concomitant]
     Active Substance: PREDNISOLONE
     Indication: POLYMYALGIA RHEUMATICA
     Route: 065

REACTIONS (4)
  - Central nervous system vasculitis [Recovering/Resolving]
  - Leukoencephalopathy [Recovering/Resolving]
  - Hepatic enzyme increased [Recovered/Resolved]
  - Cerebral small vessel ischaemic disease [Recovering/Resolving]
